FAERS Safety Report 17770626 (Version 3)
Quarter: 2020Q2

REPORT INFORMATION
  Report Type: Spontaneous
  Country: ES (occurrence: ES)
  Receive Date: 20200512
  Receipt Date: 20200612
  Transmission Date: 20200714
  Serious: Yes (Hospitalization)
  Sender: FDA-Public Use
  Company Number: NVSC2020ES126328

PATIENT
  Age: 61 Year
  Sex: Female

DRUGS (1)
  1. GILENYA [Suspect]
     Active Substance: FINGOLIMOD HYDROCHLORIDE
     Indication: MULTIPLE SCLEROSIS
     Dosage: UNK
     Route: 065
     Dates: start: 2015

REACTIONS (7)
  - Hemiparesis [Recovering/Resolving]
  - Personality change [Unknown]
  - Progressive multifocal leukoencephalopathy [Unknown]
  - Dizziness [Recovering/Resolving]
  - Hypertension [Recovering/Resolving]
  - Lymphocyte count abnormal [Recovering/Resolving]
  - Dysarthria [Recovering/Resolving]
